FAERS Safety Report 5480875-8 (Version None)
Quarter: 2007Q4

REPORT INFORMATION
  Report Type: 
  Country: None (occurrence: None)
  Receive Date: 20071004
  Receipt Date: 20070919
  Transmission Date: 20080405
  Serious: Yes (Disabling)
  Sender: FDA-Public Use
  Company Number: S07-UKI-05250-01

PATIENT
  Age: 56 Year
  Sex: Female
  Weight: 54 kg

DRUGS (7)
  1. CITALOPRAM HYDROBROMIDE [Suspect]
     Indication: DEPRESSION
     Dosage: 20 MG QD PO
     Route: 048
     Dates: start: 20070726
  2. CITALOPRAM HYDROBROMIDE [Suspect]
     Indication: HOT FLUSH
     Dosage: 20 MG QD PO
     Route: 048
     Dates: start: 20070726
  3. METHOTREXATE [Suspect]
     Indication: RHEUMATOID ARTHRITIS
  4. BENDROFLUMETHIAZIDE [Concomitant]
  5. CALCICHEW-D3 [Concomitant]
  6. FOLIC ACID [Concomitant]
  7. INFLIXIMAB [Concomitant]

REACTIONS (4)
  - CONDITION AGGRAVATED [None]
  - DRUG INTERACTION [None]
  - DRUG LEVEL DECREASED [None]
  - RHEUMATOID ARTHRITIS [None]
